FAERS Safety Report 4797339-7 (Version None)
Quarter: 2005Q4

REPORT INFORMATION
  Report Type: 
  Country: None (occurrence: None)
  Receive Date: 20051013
  Receipt Date: 20050908
  Transmission Date: 20060501
  Serious: Yes (Other)
  Sender: FDA-Public Use
  Company Number: 2005AC01360

PATIENT
  Age: 34 Year
  Sex: Female

DRUGS (3)
  1. QUETIAPINE FUMARATE [Suspect]
     Indication: INSOMNIA
     Dosage: TABLETS CRUSHED AND MADE INTO A SOLUTION, TAKEN INTRAVENOUSLY
     Route: 048
  2. QUETIAPINE FUMARATE [Suspect]
     Indication: IMPULSE-CONTROL DISORDER
     Dosage: TABLETS CRUSHED AND MADE INTO A SOLUTION, TAKEN INTRAVENOUSLY
     Route: 048
  3. QUETIAPINE FUMARATE [Suspect]
     Indication: IRRITABILITY
     Dosage: TABLETS CRUSHED AND MADE INTO A SOLUTION, TAKEN INTRAVENOUSLY
     Route: 048

REACTIONS (4)
  - DRUG ABUSER [None]
  - INCORRECT ROUTE OF DRUG ADMINISTRATION [None]
  - INTENTIONAL DRUG MISUSE [None]
  - SEDATION [None]
